FAERS Safety Report 8217675-1 (Version None)
Quarter: 2012Q1

REPORT INFORMATION
  Report Type: 
  Country: None (occurrence: None)
  Receive Date: 20120315
  Receipt Date: 20120301
  Transmission Date: 20120608
  Serious: Yes (Hospitalization)
  Sender: FDA-Public Use
  Company Number: 1216005

PATIENT
  Age: 75 Year
  Sex: Female
  Weight: 60 kg

DRUGS (7)
  1. METOCLOPRAMIDE [Concomitant]
  2. PREDNISOLONE [Concomitant]
  3. (DEXAMETHASONE) [Concomitant]
  4. GRANISETRON [Concomitant]
  5. FLUOROURACIL [Concomitant]
  6. DOCETAXEL [Suspect]
     Indication: GASTRIC CANCER
     Dosage: 5.714 MG/DAY, INTRAVENOUS DRIP
     Route: 041
     Dates: start: 20120106
  7. CISPLATIN [Concomitant]

REACTIONS (6)
  - VOMITING [None]
  - MUCOSAL INFLAMMATION [None]
  - HYPOKALAEMIA [None]
  - DIARRHOEA [None]
  - FEBRILE NEUTROPENIA [None]
  - SYNCOPE [None]
